FAERS Safety Report 8366152-6 (Version None)
Quarter: 2012Q2

REPORT INFORMATION
  Report Type: 
  Country: None (occurrence: None)
  Receive Date: 20120515
  Receipt Date: 20120502
  Transmission Date: 20120825
  Serious: Yes (Other)
  Sender: FDA-Public Use
  Company Number: 2012MA005995

PATIENT
  Age: 74 Year
  Sex: Female

DRUGS (6)
  1. GEMCITABINE HYDROCHLORIDE [Suspect]
     Indication: OESOPHAGEAL SQUAMOUS CELL CARCINOMA
     Dosage: 2000 MG, IV
     Route: 042
     Dates: start: 20120403
  2. CENTYL K [Concomitant]
  3. ADALAT CC [Concomitant]
  4. RAMIPRIL [Concomitant]
  5. ASPIRIN [Concomitant]
  6. ATENOLOL [Concomitant]

REACTIONS (4)
  - DYSARTHRIA [None]
  - VISION BLURRED [None]
  - HEADACHE [None]
  - MALAISE [None]
